FAERS Safety Report 8620815-3 (Version None)
Quarter: 2012Q3

REPORT INFORMATION
  Report Type: 
  Country: None (occurrence: None)
  Receive Date: 20120824
  Receipt Date: 20120810
  Transmission Date: 20120928
  Serious: Yes (Other)
  Sender: FDA-Public Use
  Company Number: AT-SPECTRUM PHARMACEUTICALS, INC.-12-F-AT-00123

PATIENT
  Age: 77 Year
  Sex: Female

DRUGS (8)
  1. CAPECITABINE [Suspect]
     Indication: GASTRIC CANCER
     Dosage: 950 MG/M2, BID
     Route: 065
     Dates: start: 20050701
  2. LEUCOVORIN CALCIUM [Suspect]
     Indication: GASTRIC CANCER
     Dosage: UNK
     Route: 065
     Dates: start: 20050601
  3. ETOPOSIDE [Suspect]
     Indication: GASTRIC CANCER
     Dosage: UNK
     Route: 065
     Dates: start: 20050301
  4. CETIRIZINE [Concomitant]
     Indication: PRODUCT USED FOR UNKNOWN INDICATION
     Dosage: UNK
     Route: 065
  5. FLUOROURACIL [Suspect]
     Indication: GASTRIC CANCER
     Dosage: UNK
     Route: 065
     Dates: start: 20050601
  6. FLUOROURACIL [Suspect]
     Dosage: UNK
     Route: 065
     Dates: start: 20050301
  7. LEUCOVORIN CALCIUM [Suspect]
     Dosage: UNK
     Route: 065
     Dates: start: 20050301
  8. IRINOTECAN HYDROCHLORIDE [Suspect]
     Indication: GASTRIC CANCER
     Dosage: UNK
     Route: 065
     Dates: start: 20050601

REACTIONS (11)
  - CUTANEOUS LUPUS ERYTHEMATOSUS [None]
  - GAMMA-GLUTAMYLTRANSFERASE INCREASED [None]
  - COMPLEMENT FACTOR C3 DECREASED [None]
  - ECZEMA [None]
  - ERYTHEMA [None]
  - GASTRIC CANCER [None]
  - RASH ERYTHEMATOUS [None]
  - PHOTOSENSITIVITY REACTION [None]
  - LEUKOPENIA [None]
  - NEOPLASM PROGRESSION [None]
  - PARANEOPLASTIC SYNDROME [None]
